FAERS Safety Report 8619379-X (Version None)
Quarter: 2012Q3

REPORT INFORMATION
  Report Type: 
  Country: None (occurrence: None)
  Receive Date: 20120824
  Receipt Date: 20120816
  Transmission Date: 20120928
  Serious: Yes (Hospitalization, Other)
  Sender: FDA-Public Use
  Company Number: US-US-EMD SERONO, INC.-7031106

PATIENT
  Sex: Male
  Weight: 86 kg

DRUGS (1)
  1. REBIF [Suspect]
     Indication: MULTIPLE SCLEROSIS
     Route: 058
     Dates: start: 20040426

REACTIONS (4)
  - INJECTION SITE PAIN [None]
  - MYOCARDIAL INFARCTION [None]
  - MULTIPLE SCLEROSIS RELAPSE [None]
  - INJECTION SITE ERYTHEMA [None]
